FAERS Safety Report 13007097 (Version 5)
Quarter: 2018Q4

REPORT INFORMATION
  Report Type: Spontaneous
  Country: JP (occurrence: JP)
  Receive Date: 20161207
  Receipt Date: 20181109
  Transmission Date: 20190204
  Serious: Yes (Death, Other)
  Sender: FDA-Public Use
  Company Number: JP-PFIZER INC-2016561927

PATIENT
  Age: 72 Year
  Sex: Male
  Weight: 49.3 kg

DRUGS (8)
  1. RIFABUTIN. [Interacting]
     Active Substance: RIFABUTIN
     Dosage: UNK
  2. ETHAMBUTOL [Interacting]
     Active Substance: ETHAMBUTOL HYDROCHLORIDE
     Indication: MYCOBACTERIUM AVIUM COMPLEX INFECTION
     Dosage: 750 MG, UNK
  3. ETHAMBUTOL [Interacting]
     Active Substance: ETHAMBUTOL HYDROCHLORIDE
     Dosage: UNK
  4. GEFITINIB. [Interacting]
     Active Substance: GEFITINIB
     Indication: LUNG CARCINOMA CELL TYPE UNSPECIFIED STAGE IV
     Dosage: 250 MG, DAILY
     Dates: start: 201208
  5. RIFABUTIN. [Suspect]
     Active Substance: RIFABUTIN
     Indication: MYCOBACTERIUM AVIUM COMPLEX INFECTION
     Dosage: 300 MG, DAILY
  6. CLARITHROMYCIN. [Interacting]
     Active Substance: CLARITHROMYCIN
     Dosage: UNK
  7. CLARITHROMYCIN. [Interacting]
     Active Substance: CLARITHROMYCIN
     Indication: MYCOBACTERIUM AVIUM COMPLEX INFECTION
     Dosage: 800 MG, DAILY
  8. GEFITINIB. [Interacting]
     Active Substance: GEFITINIB
     Dosage: 250 MG, ALTERNATE DAY

REACTIONS (6)
  - Drug interaction [Unknown]
  - Drug level fluctuating [Unknown]
  - Dysgeusia [Unknown]
  - Cholestasis [Unknown]
  - Gastrointestinal disorder [Unknown]
  - Neoplasm progression [Unknown]
